FAERS Safety Report 19888085 (Version 1)
Quarter: 2021Q3

REPORT INFORMATION
  Report Type: Spontaneous
  Country: US (occurrence: US)
  Receive Date: 20210927
  Receipt Date: 20210927
  Transmission Date: 20211014
  Serious: Yes (Death, Hospitalization)
  Sender: FDA-Public Use
  Company Number: None

PATIENT
  Age: 87 Year
  Sex: Male

DRUGS (1)
  1. CASIRIVIMAB/IMDEVIMAB [Suspect]
     Active Substance: CASIRIVIMAB\IMDEVIMAB
     Indication: COVID-19
     Dosage: ?          OTHER FREQUENCY:1 DOSE;?
     Route: 041
     Dates: start: 20210830, end: 20210830

REACTIONS (4)
  - Tachycardia [None]
  - Oxygen saturation decreased [None]
  - Acute myocardial infarction [None]
  - Cardiac arrest [None]

NARRATIVE: CASE EVENT DATE: 20210830
